FAERS Safety Report 5257614-9 (Version None)
Quarter: 2007Q1

REPORT INFORMATION
  Report Type: 
  Country: None (occurrence: None)
  Receive Date: 20070307
  Receipt Date: 20070105
  Transmission Date: 20070707
  Serious: No
  Sender: FDA-Public Use
  Company Number: US-GLAXOSMITHKLINE-A0634476A

PATIENT
  Age: 82 Year
  Sex: Male

DRUGS (4)
  1. REQUIP [Suspect]
     Indication: PARKINSON'S DISEASE
     Dosage: 2MG THREE TIMES PER DAY
     Route: 048
     Dates: start: 20061001, end: 20061101
  2. PLAVIX [Concomitant]
  3. ASPIRIN [Concomitant]
  4. NORVASC [Concomitant]

REACTIONS (6)
  - DRY SKIN [None]
  - ERYTHEMA [None]
  - PRURITUS [None]
  - RASH [None]
  - SKIN EXFOLIATION [None]
  - WOUND SECRETION [None]
